FAERS Safety Report 8856874 (Version 1)
Quarter: 2012Q4

REPORT INFORMATION
  Report Type: Spontaneous
  Country: US (occurrence: None)
  Receive Date: 20121019
  Receipt Date: 20121019
  Transmission Date: 20130627
  Serious: Yes (Hospitalization, Other)
  Sender: FDA-Public Use
  Company Number: 2012MA012247

PATIENT
  Age: 78 Year
  Sex: Male
  Weight: 84.5 kg

DRUGS (28)
  1. OXYCODONE AND ACETAMINOPHEN [Suspect]
     Indication: CONFUSION
  2. ACETAMINOPHEN [Concomitant]
  3. ALLOPURINOL [Concomitant]
  4. BACLOFEN [Concomitant]
  5. CAPSAICIN [Concomitant]
  6. CINACALCET [Concomitant]
  7. CLONIDINE [Concomitant]
  8. COLCHICINE [Concomitant]
  9. DESIPRAMINE [Concomitant]
  10. DOCUSATE [Concomitant]
  11. ERGOCALCIFEROL [Concomitant]
  12. FERROUS SULFATE [Concomitant]
  13. FINASTERIDE [Concomitant]
  14. FUROSEMIDE [Concomitant]
  15. HYDROCODONE/ACETAMINOPHEN [Concomitant]
  16. LISINOPRIL [Concomitant]
  17. METFORMIN [Concomitant]
  18. NAPROXEN [Concomitant]
  19. OMEPRAZOLE [Concomitant]
  20. RANITIDINE [Concomitant]
  21. SIMVASTATIN [Concomitant]
  22. TERAZOSIN [Concomitant]
  23. VARDENAFIL [Concomitant]
  24. VITAMIN E [Concomitant]
  25. GABAPENTIN [Concomitant]
  26. ASPIRIN [Concomitant]
  27. PROPOXYPHENE [Concomitant]
  28. OXYCODONE [Concomitant]

REACTIONS (3)
  - Delirium [None]
  - Agitation [None]
  - Cognitive disorder [None]
